FAERS Safety Report 7600409-9 (Version None)
Quarter: 2011Q3

REPORT INFORMATION
  Report Type: 
  Country: None (occurrence: None)
  Receive Date: 20110706
  Receipt Date: 20110706
  Transmission Date: 20111222
  Serious: Yes (Life-Threatening)
  Sender: FDA-Public Use
  Company Number: None

PATIENT
  Age: 56 Year
  Sex: Female
  Weight: 74.3899 kg

DRUGS (2)
  1. LISINOPRIL AND HYDROCHLOROTHIAZIDE [Suspect]
     Indication: CHEST PAIN
     Dosage: 1 DAILY PO
     Route: 048
     Dates: start: 20110610, end: 20110623
  2. LISINOPRIL AND HYDROCHLOROTHIAZIDE [Suspect]
     Indication: MALIGNANT HYPERTENSION
     Dosage: 1 DAILY PO
     Route: 048
     Dates: start: 20110610, end: 20110623

REACTIONS (5)
  - THROAT TIGHTNESS [None]
  - FATIGUE [None]
  - SPEECH DISORDER [None]
  - DYSPNOEA [None]
  - COUGH [None]
